FAERS Safety Report 10022306 (Version 1)
Quarter: 2014Q1

REPORT INFORMATION
  Report Type: Spontaneous
  Country: US (occurrence: US)
  Receive Date: 20140319
  Receipt Date: 20140319
  Transmission Date: 20141002
  Serious: No
  Sender: FDA-Public Use
  Company Number: US-ASTRAZENECA-2014SE02021

PATIENT
  Sex: Female

DRUGS (2)
  1. TOPROL- XL [Suspect]
     Route: 048
  2. TOPROL- XL [Suspect]
     Dosage: GENERIC
     Route: 065

REACTIONS (3)
  - Dehydration [Unknown]
  - Intentional drug misuse [Unknown]
  - Drug intolerance [Unknown]
